FAERS Safety Report 10599645 (Version 1)
Quarter: 2014Q4

REPORT INFORMATION
  Report Type: Report from Study
  Country: MX (occurrence: MX)
  Receive Date: 20141121
  Receipt Date: 20141121
  Transmission Date: 20150529
  Serious: Yes (Other)
  Sender: FDA-Public Use
  Company Number: PHHY2014MX152783

PATIENT
  Age: 86 Year
  Sex: Female

DRUGS (1)
  1. EXELON PATCH [Suspect]
     Active Substance: RIVASTIGMINE
     Indication: HEAD DISCOMFORT
     Dosage: 4.6 MG, QD
     Route: 062

REACTIONS (5)
  - Infarction [Unknown]
  - Fall [Unknown]
  - Abnormal behaviour [Not Recovered/Not Resolved]
  - Contusion [Not Recovered/Not Resolved]
  - Speech disorder [Not Recovered/Not Resolved]

NARRATIVE: CASE EVENT DATE: 201407
